FAERS Safety Report 19197377 (Version 1)
Quarter: 2021Q2

REPORT INFORMATION
  Report Type: Spontaneous
  Country: US (occurrence: US)
  Receive Date: 20210430
  Receipt Date: 20210430
  Transmission Date: 20210717
  Serious: Yes (Hospitalization, Other)
  Sender: FDA-Public Use
  Company Number: US-JIANGSU HENGRUI MEDICINE CO., LTD.-2110047

PATIENT
  Age: 66 Year
  Sex: Male

DRUGS (3)
  1. LEUCOVORINA [Suspect]
     Active Substance: LEUCOVORIN CALCIUM
  2. OXALIPLATIN INJECTION USP, 5 MG/ML, PACKAGED IN 50 MG/10 ML AND 100 MG [Suspect]
     Active Substance: OXALIPLATIN
     Indication: OESOPHAGEAL ADENOCARCINOMA
  3. FLUOROURACIL 5 FU [Suspect]
     Active Substance: FLUOROURACIL

REACTIONS (2)
  - Laryngeal oedema [Recovering/Resolving]
  - Product use in unapproved indication [Unknown]
